FAERS Safety Report 4686118-7 (Version None)
Quarter: 2005Q2

REPORT INFORMATION
  Report Type: 
  Country: None (occurrence: None)
  Receive Date: 20050606
  Receipt Date: 20050520
  Transmission Date: 20051028
  Serious: Yes (Hospitalization)
  Sender: FDA-Public Use
  Company Number: 11303

PATIENT
  Age: 57 Year
  Sex: Female

DRUGS (6)
  1. METHOTREXATE [Suspect]
     Indication: RHEUMATOID ARTHRITIS
     Dosage: 10 MG
     Route: 058
  2. ETANERCEPT [Suspect]
     Indication: RHEUMATOID ARTHRITIS
     Dosage: 25 MG, SC
     Route: 058
     Dates: start: 20041001, end: 20050403
  3. PREDNISOLONE [Concomitant]
  4. IBUPROFEN [Concomitant]
  5. CITALOPRAM [Concomitant]
  6. FOLIC ACID [Concomitant]

REACTIONS (4)
  - BLISTER [None]
  - HEPATITIS [None]
  - URTICARIA PAPULAR [None]
  - VASCULITIC RASH [None]
